FAERS Safety Report 26064344 (Version 2)
Quarter: 2025Q4

REPORT INFORMATION
  Report Type: Spontaneous
  Country: US (occurrence: US)
  Receive Date: 20251119
  Receipt Date: 20251216
  Transmission Date: 20260117
  Serious: No
  Sender: SANOFI AVENTIS
  Company Number: US-SA-2025SA342536

PATIENT
  Age: 76 Year
  Sex: Male
  Weight: 45.36 kg

DRUGS (2)
  1. CAPRELSA [Suspect]
     Active Substance: VANDETANIB
     Indication: Thyroid cancer
     Dosage: 100 MG, QD (100 MG 1 DOSE EVERY 1 DAY)
     Route: 048
     Dates: start: 20200909
  2. MAGNESIUM GLYCINATE [Concomitant]
     Active Substance: MAGNESIUM GLYCINATE
     Dosage: 130MG, WEEKLY

REACTIONS (1)
  - Sinusitis [Unknown]
